FAERS Safety Report 7244275-2 (Version None)
Quarter: 2011Q1

REPORT INFORMATION
  Report Type: 
  Country: None (occurrence: None)
  Receive Date: 20110125
  Receipt Date: 20101227
  Transmission Date: 20110831
  Serious: Yes (Hospitalization)
  Sender: FDA-Public Use
  Company Number: SE-US-EMD SERONO, INC.-7029904

PATIENT
  Sex: Female

DRUGS (4)
  1. REBIF [Suspect]
     Indication: RELAPSING-REMITTING MULTIPLE SCLEROSIS
     Dates: start: 20100421, end: 20101220
  2. PREDNISOLONE [Suspect]
     Dates: start: 20101021, end: 20101021
  3. PREDNISOLONE [Suspect]
     Indication: MULTIPLE SCLEROSIS RELAPSE
     Dates: start: 20101020, end: 20101020
  4. PREDNISOLONE [Suspect]
     Dates: start: 20101023, end: 20101023

REACTIONS (5)
  - ABSCESS [None]
  - MULTIPLE SCLEROSIS RELAPSE [None]
  - PAIN [None]
  - ERYSIPELAS [None]
  - INFLUENZA LIKE ILLNESS [None]
